FAERS Safety Report 9213850 (Version 1)
Quarter: 2013Q2

REPORT INFORMATION
  Report Type: Spontaneous
  Country: US (occurrence: None)
  Receive Date: 20130404
  Receipt Date: 20130404
  Transmission Date: 20140414
  Serious: Yes (Other)
  Sender: FDA-Public Use
  Company Number: None

PATIENT
  Age: 86 Year
  Sex: Male
  Weight: 74.84 kg

DRUGS (1)
  1. XARELTO [Suspect]

REACTIONS (4)
  - Blood urine present [None]
  - Chromaturia [None]
  - Urinary tract infection [None]
  - Haemorrhage [None]
